FAERS Safety Report 4715528-4 (Version None)
Quarter: 2005Q3

REPORT INFORMATION
  Report Type: 
  Country: None (occurrence: None)
  Receive Date: 20050718
  Receipt Date: 20050706
  Transmission Date: 20060218
  Serious: Yes (Other)
  Sender: FDA-Public Use
  Company Number: US-JNJFOC-20040204526

PATIENT
  Sex: Male
  Weight: 77.11 kg

DRUGS (14)
  1. REMICADE [Suspect]
     Indication: RHEUMATOID ARTHRITIS
     Route: 042
  2. METHOTREXATE [Concomitant]
     Indication: RHEUMATOID ARTHRITIS
  3. METHOTREXATE [Concomitant]
     Indication: CROHN'S DISEASE
  4. PREDNISONE [Concomitant]
  5. PREDNISONE [Concomitant]
  6. PREDNISONE [Concomitant]
  7. PREDNISONE [Concomitant]
  8. PREDNISONE [Concomitant]
     Indication: RHEUMATOID ARTHRITIS
  9. PREDNISONE [Concomitant]
     Indication: CROHN'S DISEASE
  10. RELAFEN [Concomitant]
  11. ATENOLOL [Concomitant]
  12. TORSEMIDE [Concomitant]
  13. DEMADEX [Concomitant]
  14. PLENDIL [Concomitant]

REACTIONS (3)
  - HYPERKERATOSIS [None]
  - PEMPHIGUS [None]
  - SKIN INJURY [None]
